FAERS Safety Report 14112694 (Version 1)
Quarter: 2017Q4

REPORT INFORMATION
  Report Type: Spontaneous
  Country: US (occurrence: US)
  Receive Date: 20171021
  Receipt Date: 20171021
  Transmission Date: 20180321
  Serious: Yes (Other)
  Sender: FDA-Public Use
  Company Number: US-009507513-1710USA008201

PATIENT
  Age: 16 Year
  Sex: Female

DRUGS (1)
  1. NEXPLANON [Suspect]
     Active Substance: ETONOGESTREL
     Indication: CONTRACEPTION
     Dosage: 1 DF, UNK
     Route: 059
     Dates: start: 20170719, end: 20170921

REACTIONS (10)
  - Implant site irritation [Unknown]
  - Implant site abscess [Unknown]
  - Staphylococcal abscess [Unknown]
  - Implant site swelling [Unknown]
  - Skin exfoliation [Unknown]
  - Implant site fibrosis [Unknown]
  - Implant site erythema [Unknown]
  - Implant site inflammation [Unknown]
  - Excessive granulation tissue [Unknown]
  - Device difficult to use [Recovered/Resolved]

NARRATIVE: CASE EVENT DATE: 2017
